FAERS Safety Report 4749643-6 (Version None)
Quarter: 2005Q3

REPORT INFORMATION
  Report Type: 
  Country: None (occurrence: None)
  Receive Date: 20050822
  Receipt Date: 20050412
  Transmission Date: 20060218
  Serious: Yes (Hospitalization, Disabling, Other)
  Sender: FDA-Public Use
  Company Number: US-MERCK-0504USA02076

PATIENT
  Age: 56 Year
  Sex: Female
  Weight: 135 kg

DRUGS (11)
  1. VIOXX [Suspect]
     Indication: PAIN
     Route: 048
     Dates: start: 19990929, end: 20001128
  2. VIOXX [Suspect]
     Route: 048
     Dates: start: 19990701, end: 19990101
  3. VIOXX [Suspect]
     Route: 048
     Dates: start: 20001129, end: 20040901
  4. VIOXX [Suspect]
     Indication: ARTHRALGIA
     Route: 048
     Dates: start: 19990929, end: 20001128
  5. VIOXX [Suspect]
     Route: 048
     Dates: start: 19990701, end: 19990101
  6. VIOXX [Suspect]
     Route: 048
     Dates: start: 20001129, end: 20040901
  7. PROZAC [Concomitant]
     Indication: ANXIETY
     Route: 065
  8. PROZAC [Concomitant]
     Indication: PANIC DISORDER
     Route: 065
  9. PAXIL [Concomitant]
     Indication: ANXIETY
     Route: 065
  10. PAXIL [Concomitant]
     Indication: PANIC DISORDER
     Route: 065
  11. SYNTHROID [Concomitant]
     Indication: HYPOTHYROIDISM
     Route: 065

REACTIONS (41)
  - ABDOMINAL PAIN UPPER [None]
  - ANXIETY [None]
  - ARTHRALGIA [None]
  - BLOOD PRESSURE INCREASED [None]
  - CARPAL TUNNEL SYNDROME [None]
  - CEREBROVASCULAR ACCIDENT [None]
  - CHEST PAIN [None]
  - CONTUSION [None]
  - DEPRESSION [None]
  - DIARRHOEA [None]
  - DYSPEPSIA [None]
  - EPICONDYLITIS [None]
  - FALL [None]
  - FIBROMYALGIA [None]
  - GASTROOESOPHAGEAL REFLUX DISEASE [None]
  - HAEMATOMA [None]
  - HEADACHE [None]
  - HERPES ZOSTER DISSEMINATED [None]
  - HYPERHIDROSIS [None]
  - HYPERTENSION [None]
  - HYPOAESTHESIA [None]
  - INJURY [None]
  - JOINT INJURY [None]
  - JOINT SPRAIN [None]
  - NAUSEA [None]
  - OEDEMA PERIPHERAL [None]
  - OSTEOARTHRITIS [None]
  - PAIN IN EXTREMITY [None]
  - PANIC ATTACK [None]
  - PANIC DISORDER [None]
  - PARAESTHESIA [None]
  - PATELLOFEMORAL PAIN SYNDROME [None]
  - PULMONARY EMBOLISM [None]
  - RASH [None]
  - SINUS HEADACHE [None]
  - SKIN PAPILLOMA [None]
  - SLEEP TERROR [None]
  - SYNCOPE [None]
  - TREMOR [None]
  - UPPER RESPIRATORY TRACT INFECTION [None]
  - VOMITING [None]
